FAERS Safety Report 5391108-5 (Version None)
Quarter: 2007Q3

REPORT INFORMATION
  Report Type: 
  Country: None (occurrence: None)
  Receive Date: 20070719
  Receipt Date: 20070709
  Transmission Date: 20080115
  Serious: Yes (Other)
  Sender: FDA-Public Use
  Company Number: PHHO2006NL12011

PATIENT
  Age: 43 Year
  Sex: Female
  Weight: 81 kg

DRUGS (1)
  1. RAD OR NEORAL VS MYFORTIC [Suspect]
     Indication: RENAL TRANSPLANT
     Dosage: UNK, UNK
     Dates: start: 20060305, end: 20060305

REACTIONS (4)
  - HYPERSENSITIVITY [None]
  - RASH [None]
  - STRIDOR [None]
  - URTICARIA [None]
